FAERS Safety Report 14015420 (Version 1)
Quarter: 2017Q3

REPORT INFORMATION
  Report Type: Spontaneous
  Country: TR (occurrence: TR)
  Receive Date: 20170927
  Receipt Date: 20170927
  Transmission Date: 20171128
  Serious: Yes (Other)
  Sender: FDA-Public Use
  Company Number: TR-CONCORDIA PHARMACEUTICALS INC.-GSH201709-005513

PATIENT
  Age: 62 Year
  Sex: Male

DRUGS (3)
  1. PREDNISOLONE. [Suspect]
     Active Substance: PREDNISOLONE
  2. URSODEOXYCHOLIC ACID [Suspect]
     Active Substance: URSODIOL
  3. AZATHIOPRINE. [Suspect]
     Active Substance: AZATHIOPRINE

REACTIONS (4)
  - Cytomegalovirus duodenitis [Recovered/Resolved]
  - Helicobacter gastritis [Unknown]
  - Mucosal ulceration [Recovered/Resolved]
  - Arthritis bacterial [Unknown]
